FAERS Safety Report 4907021-0 (Version None)
Quarter: 2006Q1

REPORT INFORMATION
  Report Type: 
  Country: None (occurrence: None)
  Receive Date: 20060207
  Receipt Date: 20060119
  Transmission Date: 20060701
  Serious: No
  Sender: FDA-Public Use
  Company Number: US200601004532

PATIENT
  Age: 21 Year
  Sex: Female

DRUGS (2)
  1. STRATTERA [Suspect]
     Dosage: 60 MG
     Dates: start: 20040101, end: 20060119
  2. WELLBUTRIN [Concomitant]

REACTIONS (1)
  - LIVER FUNCTION TEST ABNORMAL [None]
